FAERS Safety Report 19681901 (Version 1)
Quarter: 2021Q3

REPORT INFORMATION
  Report Type: Spontaneous
  Country: US (occurrence: US)
  Receive Date: 20210810
  Receipt Date: 20210810
  Transmission Date: 20211014
  Serious: Yes (Other)
  Sender: FDA-Public Use
  Company Number: US-GLAXOSMITHKLINE-US2021GSK161723

PATIENT
  Age: 63 Year
  Sex: Male

DRUGS (4)
  1. FLUTICASONE. [Suspect]
     Active Substance: FLUTICASONE
     Indication: RHINITIS ALLERGIC
     Dosage: 50 MG, Z (PER SPRAY 1?2 PUFFS ONCE TO TWICE DAILY)
     Route: 045
  2. AZELASTINE SPRAY [Concomitant]
     Indication: RHINITIS ALLERGIC
     Dosage: UNK
  3. EMTRICITABINE + TENOFOVIR ALAFENAMIDE [Concomitant]
     Active Substance: EMTRICITABINE\TENOFOVIR ALAFENAMIDE FUMARATE
     Indication: ANTIRETROVIRAL THERAPY
     Dosage: UNK
  4. NEVIRAPINE. [Concomitant]
     Active Substance: NEVIRAPINE
     Indication: ANTIRETROVIRAL THERAPY
     Dosage: UNK

REACTIONS (4)
  - Kaposi^s sarcoma AIDS related [Recovered/Resolved]
  - Immunosuppression [Unknown]
  - Nasal polyps [Recovered/Resolved]
  - Skin lesion [Recovered/Resolved]
